FAERS Safety Report 5358144-6 (Version None)
Quarter: 2007Q2

REPORT INFORMATION
  Report Type: 
  Country: None (occurrence: None)
  Receive Date: 20070530
  Receipt Date: 20061130
  Transmission Date: 20071010
  Serious: Yes (Hospitalization)
  Sender: FDA-Public Use
  Company Number: US200605006595

PATIENT
  Age: 47 Year
  Sex: Male
  Weight: 138.3 kg

DRUGS (1)
  1. ZYPREXA [Suspect]
     Indication: DEPRESSION
     Dosage: 20 MG
     Dates: start: 19990801, end: 20031201

REACTIONS (4)
  - BLOOD CHOLESTEROL ABNORMAL [None]
  - DIABETIC COMA [None]
  - HYPERTENSION [None]
  - HYPOGLYCAEMIA [None]
